FAERS Safety Report 5313386-0 (Version None)
Quarter: 2007Q2

REPORT INFORMATION
  Report Type: 
  Country: None (occurrence: None)
  Receive Date: 20070427
  Receipt Date: 20070427
  Transmission Date: 20071010
  Serious: Yes (Hospitalization)
  Sender: FDA-Public Use
  Company Number: None

PATIENT
  Age: 57 Year
  Sex: Male
  Weight: 76 kg

DRUGS (6)
  1. ZOMETA [Suspect]
     Indication: GLIOBLASTOMA MULTIFORME
     Dosage: 4MG Q12 WEEKS IV
     Route: 042
     Dates: start: 20070425
  2. JARRO-DOPHILUS PROBIOTIC [Concomitant]
  3. MIRILAX [Concomitant]
  4. LEXAPRO [Concomitant]
  5. DILANTIN [Concomitant]
  6. LISINOPRIL [Concomitant]

REACTIONS (1)
  - CONVULSION [None]
